FAERS Safety Report 8046527-5 (Version None)
Quarter: 2012Q1

REPORT INFORMATION
  Report Type: 
  Country: None (occurrence: None)
  Receive Date: 20120113
  Receipt Date: 20120105
  Transmission Date: 20120608
  Serious: Yes (Other)
  Sender: FDA-Public Use
  Company Number: US-ASTRAZENECA-2011SE76757

PATIENT
  Age: 50 Year
  Sex: Male

DRUGS (4)
  1. NEXIUM [Suspect]
     Indication: GASTRIC DISORDER
     Route: 048
  2. NEXIUM [Suspect]
     Indication: GASTROOESOPHAGEAL REFLUX DISEASE
     Route: 048
  3. OXYCODONE HCL [Concomitant]
  4. PREVACID [Suspect]
     Route: 065

REACTIONS (11)
  - DRUG DOSE OMISSION [None]
  - WRIST FRACTURE [None]
  - DIARRHOEA [None]
  - ARTHRALGIA [None]
  - GASTROOESOPHAGEAL REFLUX DISEASE [None]
  - SLEEP DISORDER DUE TO GENERAL MEDICAL CONDITION, HYPERSOMNIA TYPE [None]
  - FALL [None]
  - HAND FRACTURE [None]
  - LIMB INJURY [None]
  - PAIN [None]
  - GASTRIC DISORDER [None]
